FAERS Safety Report 13464482 (Version 1)
Quarter: 2017Q2

REPORT INFORMATION
  Report Type: Spontaneous
  Country: US (occurrence: US)
  Receive Date: 20170420
  Receipt Date: 20170420
  Transmission Date: 20170830
  Serious: No
  Sender: FDA-Public Use
  Company Number: US-ROCHE-677816

PATIENT
  Sex: Female
  Weight: 81.6 kg

DRUGS (1)
  1. ACCUTANE [Suspect]
     Active Substance: ISOTRETINOIN
     Indication: HEREDITARY HAEMORRHAGIC TELANGIECTASIA
     Route: 048
     Dates: start: 20091102, end: 20100105

REACTIONS (1)
  - Haemoglobin decreased [Not Recovered/Not Resolved]
